FAERS Safety Report 6385749-6 (Version None)
Quarter: 2009Q4

REPORT INFORMATION
  Report Type: 
  Country: None (occurrence: None)
  Receive Date: 20091002
  Receipt Date: 20080925
  Transmission Date: 20100525
  Serious: No
  Sender: FDA-Public Use
  Company Number: US-ASTRAZENECA-2008UW20281

PATIENT
  Age: 68 Year
  Sex: Female

DRUGS (8)
  1. ARIMIDEX [Suspect]
     Route: 048
     Dates: start: 20050201
  2. CRESTOR [Concomitant]
  3. LIPID [Concomitant]
  4. NORVASC [Concomitant]
  5. MONOPRIL [Concomitant]
  6. SYNTHROID [Concomitant]
  7. NEURONTIN [Concomitant]
  8. FUROSEMIDE [Concomitant]

REACTIONS (2)
  - HEADACHE [None]
  - NERVE INJURY [None]
